FAERS Safety Report 5905040-9 (Version None)
Quarter: 2008Q4

REPORT INFORMATION
  Report Type: 
  Country: None (occurrence: None)
  Receive Date: 20081001
  Receipt Date: 20080807
  Transmission Date: 20090506
  Serious: Yes (Death, Other)
  Sender: FDA-Public Use
  Company Number: US-AVENTIS-200813444US

PATIENT
  Sex: Male
  Weight: 81.82 kg

DRUGS (5)
  1. LANTUS [Suspect]
     Dosage: DOSE: 25 - 30
     Route: 058
     Dates: start: 20080520
  2. PROZAC [Concomitant]
     Dosage: DOSE: UNK
  3. MEDCOR [Concomitant]
     Dosage: DOSE: UNK
  4. PRILOSEC [Concomitant]
     Dosage: DOSE: UNK
  5. LEVOTHYROXINE SODIUM [Concomitant]
     Dosage: DOSE: UNK

REACTIONS (3)
  - BLOOD GLUCOSE INCREASED [None]
  - DEATH [None]
  - HYPOGLYCAEMIA [None]
